FAERS Safety Report 7806311-1 (Version None)
Quarter: 2011Q4

REPORT INFORMATION
  Report Type: 
  Country: None (occurrence: None)
  Receive Date: 20111011
  Receipt Date: 20100928
  Transmission Date: 20120403
  Serious: No
  Sender: FDA-Public Use
  Company Number: US-GLAXOSMITHKLINE-A0858691A

PATIENT
  Age: 50 Year
  Sex: Female

DRUGS (2)
  1. VERDESO [Suspect]
     Indication: ACNE
     Dosage: 1APP AS REQUIRED
     Route: 061
     Dates: start: 20080101
  2. MULTI-VITAMINS [Concomitant]

REACTIONS (2)
  - SKIN DISORDER [None]
  - PRODUCT QUALITY ISSUE [None]
